FAERS Safety Report 6248886-2 (Version None)
Quarter: 2009Q2

REPORT INFORMATION
  Report Type: 
  Country: None (occurrence: None)
  Receive Date: 20090629
  Receipt Date: 20090617
  Transmission Date: 20091009
  Serious: Yes (Hospitalization)
  Sender: FDA-Public Use
  Company Number: JP-PFIZER INC-2009225056

PATIENT
  Age: 69 Year

DRUGS (3)
  1. SUNITINIB MALATE [Suspect]
     Indication: HEPATIC NEOPLASM MALIGNANT
     Dosage: 37.5 MG, 1X/DAY
     Route: 048
     Dates: start: 20090529
  2. AMLODIPINE BESILATE [Concomitant]
     Dosage: UNK
     Route: 048
  3. MOSAPRIDE CITRATE [Concomitant]
     Dosage: UNK
     Route: 048

REACTIONS (1)
  - UPPER RESPIRATORY TRACT INFLAMMATION [None]
